FAERS Safety Report 7994096-8 (Version None)
Quarter: 2011Q4

REPORT INFORMATION
  Report Type: 
  Country: None (occurrence: None)
  Receive Date: 20111220
  Receipt Date: 20111208
  Transmission Date: 20120403
  Serious: Yes (Hospitalization, Other)
  Sender: FDA-Public Use
  Company Number: CA-JNJFOC-20110808903

PATIENT
  Sex: Male
  Weight: 104 kg

DRUGS (6)
  1. REMICADE [Suspect]
     Indication: ANKYLOSING SPONDYLITIS
     Route: 042
     Dates: start: 20090919
  2. REMICADE [Suspect]
     Route: 042
     Dates: start: 20111208
  3. NAPROXEN [Concomitant]
  4. REMICADE [Suspect]
     Route: 042
     Dates: start: 20110706, end: 20110817
  5. PERINDOPRIL ERBUMINE [Concomitant]
  6. NEXIUM [Concomitant]

REACTIONS (4)
  - LICHEN PLANUS [None]
  - ABASIA [None]
  - ECZEMA [None]
  - STAPHYLOCOCCAL INFECTION [None]
